FAERS Safety Report 5715430-5 (Version None)
Quarter: 2008Q2

REPORT INFORMATION
  Report Type: 
  Country: None (occurrence: None)
  Receive Date: 20080423
  Receipt Date: 20080415
  Transmission Date: 20081010
  Serious: Yes (Death, Hospitalization)
  Sender: FDA-Public Use
  Company Number: FR-PFIZER INC-2008033545

PATIENT
  Sex: Male
  Weight: 54 kg

DRUGS (8)
  1. SUTENT [Suspect]
     Indication: SQUAMOUS CELL CARCINOMA
     Route: 048
     Dates: start: 20080321, end: 20080412
  2. ORAMORPH SR [Concomitant]
     Dosage: DAILY DOSE:30MG
  3. DURAGESIC-100 [Concomitant]
     Dosage: DAILY DOSE:25MCG
  4. ALPRAZOLAM [Concomitant]
     Dosage: DAILY DOSE:.25MG
  5. NICOPATCH [Concomitant]
     Dosage: DAILY DOSE:21MG
  6. PAROXETINE HCL [Concomitant]
     Dosage: DAILY DOSE:20MG
  7. PANTOPRAZOLE SODIUM [Concomitant]
  8. LYRICA [Concomitant]
     Dosage: DAILY DOSE:75MG
     Dates: start: 20080105

REACTIONS (1)
  - DEATH [None]
